FAERS Safety Report 12634717 (Version 1)
Quarter: 2016Q3

REPORT INFORMATION
  Report Type: Spontaneous
  Country: ES (occurrence: ES)
  Receive Date: 20160809
  Receipt Date: 20160809
  Transmission Date: 20161109
  Serious: Yes (Other)
  Sender: FDA-Public Use
  Company Number: ES-ASTRAZENECA-2016SE83692

PATIENT
  Age: 76 Year
  Sex: Female

DRUGS (2)
  1. CRESTOR [Suspect]
     Active Substance: ROSUVASTATIN CALCIUM
     Route: 048
     Dates: start: 20160419
  2. EZETEMIBE [Interacting]
     Active Substance: EZETIMIBE
     Indication: CARDIAC VALVE SCLEROSIS
     Route: 048
     Dates: start: 20160718, end: 20160720

REACTIONS (4)
  - Drug interaction [Unknown]
  - Paraesthesia oral [Unknown]
  - Paraesthesia [Unknown]
  - Oedema peripheral [Unknown]

NARRATIVE: CASE EVENT DATE: 201607
